FAERS Safety Report 12765281 (Version 8)
Quarter: 2017Q3

REPORT INFORMATION
  Report Type: Spontaneous
  Country: US (occurrence: US)
  Receive Date: 20160921
  Receipt Date: 20170921
  Transmission Date: 20171127
  Serious: Yes (Hospitalization)
  Sender: FDA-Public Use
  Company Number: US-PFIZER INC-2016415102

PATIENT
  Age: 68 Year
  Sex: Female
  Weight: 74.38 kg

DRUGS (26)
  1. TESSALON [Concomitant]
     Active Substance: BENZONATATE
     Indication: COUGH
     Dosage: 100 MG, AS NEEDED (THREE TIMES A DAY)
     Route: 048
  2. DOCUSATE SODIUM. [Concomitant]
     Active Substance: DOCUSATE SODIUM
     Dosage: 50 MG, 1X/DAY
  3. IBRANCE [Suspect]
     Active Substance: PALBOCICLIB
     Indication: BREAST CANCER METASTATIC
     Dosage: 125 MG, DAILY
     Dates: start: 20160903
  4. VITAMIN D [Concomitant]
     Active Substance: CHOLECALCIFEROL
     Dosage: 800 IU, UNK
  5. CALTRATE 600+D [Concomitant]
     Indication: SUPPLEMENTATION THERAPY
     Dosage: (600 MG CALCIUM-800 UNIT-50 MG)
     Route: 048
  6. ADVIL [Concomitant]
     Active Substance: IBUPROFEN
     Dosage: UNK
  7. ATORVASTATIN CALCIUM. [Concomitant]
     Active Substance: ATORVASTATIN CALCIUM
     Dosage: UNK
  8. CALCIUM [Concomitant]
     Active Substance: CALCIUM
     Dosage: 300 MG, UNK
  9. IBRANCE [Suspect]
     Active Substance: PALBOCICLIB
     Dosage: 125 MG, CYCLIC [ONCE A DAY FOR 3 WEEKS AND DISCONTINUE FOR 1 WEEK]
     Dates: start: 20170509
  10. DOCUSATE SODIUM. [Concomitant]
     Active Substance: DOCUSATE SODIUM
     Indication: FAECES SOFT
     Dosage: 100 MG, 1X/DAY
     Route: 048
     Dates: start: 20130130
  11. NEXIUM [Concomitant]
     Active Substance: ESOMEPRAZOLE MAGNESIUM
     Indication: GASTROOESOPHAGEAL REFLUX DISEASE
     Dosage: UNK, 1X/DAY
  12. PREVACID [Concomitant]
     Active Substance: LANSOPRAZOLE
     Dosage: UNK, 1X/DAY
     Route: 048
     Dates: start: 20111209
  13. COMPAZINE [Concomitant]
     Active Substance: PROCHLORPERAZINE MALEATE
     Dosage: 10 MG, AS NEEDED (EVERY SIX HOURS)
     Route: 048
  14. ATENOLOL. [Concomitant]
     Active Substance: ATENOLOL
     Indication: BLOOD PRESSURE ABNORMAL
     Dosage: 50 MG, 1X/DAY
  15. ATENOLOL. [Concomitant]
     Active Substance: ATENOLOL
     Dosage: 25 MG, 1X/DAY
  16. FULVESTRANT. [Concomitant]
     Active Substance: FULVESTRANT
     Indication: BREAST CANCER
     Dosage: 1000 MG, MONTHLY (TWO 500 MG IM INJECTIONS ONCE A MONTH)
     Route: 030
  17. IBRANCE [Suspect]
     Active Substance: PALBOCICLIB
     Dosage: 125 MG, CYCLIC (ONE CAPSULE DAILY FOR 3 WEEKS, AND THEN OFF FOR 1 WEEK)
     Dates: start: 2016
  18. IBRANCE [Suspect]
     Active Substance: PALBOCICLIB
     Dosage: 125 MG, CYCLIC (21 DAYS ON, 7 DAYS OFF/TAKE WITH FOOD AS DIRECTED FOR 21 DAYS FOLLOWED BY 7 DAYS OFF
     Route: 048
     Dates: start: 20170105
  19. FULVESTRANT. [Concomitant]
     Active Substance: FULVESTRANT
     Dosage: UNK, MONTHLY
  20. ATORVASTATIN [Concomitant]
     Active Substance: ATORVASTATIN
     Indication: BLOOD CHOLESTEROL
     Dosage: 40 MG, 1X/DAY
  21. IBRANCE [Suspect]
     Active Substance: PALBOCICLIB
     Dosage: 125 MG, CYCLIC (ONCE DAILY 3 WEEKS- OFF 1 WEEK)
  22. TENORMIN [Concomitant]
     Active Substance: ATENOLOL
     Dosage: 50 MG (TAKE 1 TABLET, ONCE A DAY)
     Route: 048
     Dates: start: 20120716
  23. COLACE [Concomitant]
     Active Substance: DOCUSATE SODIUM
     Indication: FAECES SOFT
     Dosage: 50 MG, 2X/DAY
     Route: 048
  24. LIPITOR [Concomitant]
     Active Substance: ATORVASTATIN CALCIUM
     Dosage: 40 MG (TAKE 1 TABLET, ONCE A DAY, EVERY BED TIME)
     Route: 048
     Dates: start: 20130423
  25. FASLODEX [Concomitant]
     Active Substance: FULVESTRANT
     Dosage: UNK
  26. CALTRATE [Concomitant]
     Active Substance: CALCIUM CARBONATE
     Indication: SUPPLEMENTATION THERAPY
     Dosage: UNK

REACTIONS (8)
  - Nasopharyngitis [Recovered/Resolved]
  - Upper respiratory tract infection [Not Recovered/Not Resolved]
  - Malaise [Recovered/Resolved]
  - Fatigue [Recovered/Resolved]
  - Blood count abnormal [Unknown]
  - Somnolence [Recovered/Resolved]
  - White blood cell count decreased [Not Recovered/Not Resolved]
  - Tumour marker abnormal [Unknown]

NARRATIVE: CASE EVENT DATE: 2016
